FAERS Safety Report 10882837 (Version 1)
Quarter: 2015Q1

REPORT INFORMATION
  Report Type: Spontaneous
  Country: US (occurrence: None)
  Receive Date: 20150226
  Receipt Date: 20150226
  Transmission Date: 20150721
  Serious: Yes (Other)
  Sender: FDA-Public Use
  Company Number: None

PATIENT
  Age: 53 Year
  Sex: Male
  Weight: 97.52 kg

DRUGS (6)
  1. ATORVASTATIN [Concomitant]
     Active Substance: ATORVASTATIN
  2. VITAMIN D3 [Concomitant]
     Active Substance: CHOLECALCIFEROL
  3. COQ10 [Concomitant]
     Active Substance: UBIDECARENONE
  4. LEVOTHYROXINE [Suspect]
     Active Substance: LEVOTHYROXINE
     Indication: BLOOD THYROID STIMULATING HORMONE
     Dosage: 1 PILL ONCE DAILY TAKEN BY MOUTH
     Route: 048
     Dates: start: 20140214, end: 20150214
  5. FISH OIL [Concomitant]
     Active Substance: FISH OIL
  6. LEVOTHYROXINE [Concomitant]
     Active Substance: LEVOTHYROXINE

REACTIONS (4)
  - Product odour abnormal [None]
  - Tinnitus [None]
  - Product substitution issue [None]
  - Product quality issue [None]

NARRATIVE: CASE EVENT DATE: 20140214
